FAERS Safety Report 10558386 (Version 1)
Quarter: 2014Q4

REPORT INFORMATION
  Report Type: Spontaneous
  Country: US (occurrence: None)
  Receive Date: 20141029
  Receipt Date: 20141029
  Transmission Date: 20150529
  Serious: Yes (Other)
  Sender: FDA-Public Use
  Company Number: COR_00126_2014

PATIENT
  Age: 17 Year
  Sex: Male

DRUGS (2)
  1. THIOTEPA. [Suspect]
     Active Substance: THIOTEPA
     Indication: NONGERMINOMATOUS GERM CELL TUMOUR OF THE CNS
     Dosage: 3 DAYS UNTIL QD, ON DAYS -5, -4, -3
  2. ETOPOSIDE. [Suspect]
     Active Substance: ETOPOSIDE
     Indication: NONGERMINOMATOUS GERM CELL TUMOUR OF THE CNS
     Dosage: 3 DAYS UNTIL QD, ON DAYS -5, -4, -3

REACTIONS (7)
  - Hypopituitarism [None]
  - Haematotoxicity [None]
  - Neutropenia [None]
  - Gastrointestinal inflammation [None]
  - Oral herpes [None]
  - Condition aggravated [None]
  - Pyrexia [None]
